FAERS Safety Report 4305675-3 (Version None)
Quarter: 2004Q1

REPORT INFORMATION
  Report Type: 
  Country: None (occurrence: None)
  Receive Date: 20040226
  Receipt Date: 20040107
  Transmission Date: 20041129
  Serious: No
  Sender: FDA-Public Use
  Company Number: US-BRISTOL-MYERS SQUIBB COMPANY-12472932

PATIENT
  Age: 20 Year
  Sex: Male
  Weight: 62 kg

DRUGS (1)
  1. ABILIFY [Suspect]
     Indication: SCHIZOPHRENIA
     Dosage: DOSE INCREASED TO 30 MG/DAY ON 22-DEC-2003
     Route: 048
     Dates: start: 20031209

REACTIONS (1)
  - EXTRAPYRAMIDAL DISORDER [None]
